FAERS Safety Report 24468215 (Version 4)
Quarter: 2024Q4

REPORT INFORMATION
  Report Type: Spontaneous
  Country: US (occurrence: US)
  Receive Date: 20241018
  Receipt Date: 20241126
  Transmission Date: 20250115
  Serious: No
  Sender: CALLIDITAS THERAPEUTICS AB
  Company Number: US-Calliditas-2024CAL02233

PATIENT
  Age: 46 Year
  Sex: Female
  Weight: 63.5 kg

DRUGS (10)
  1. TARPEYO [Suspect]
     Active Substance: BUDESONIDE
     Indication: Haematuria
     Route: 048
     Dates: start: 20240810
  2. FARXIGA [Concomitant]
     Active Substance: DAPAGLIFLOZIN PROPANEDIOL
  3. MOUNJARO [Concomitant]
     Active Substance: TIRZEPATIDE
  4. TORSEMIDE [Concomitant]
     Active Substance: TORSEMIDE
  5. PREVACID [Concomitant]
     Active Substance: LANSOPRAZOLE
  6. WELLBUTRIN [Concomitant]
     Active Substance: BUPROPION HYDROCHLORIDE
  7. ZOFRAN [Concomitant]
     Active Substance: ONDANSETRON HYDROCHLORIDE
  8. XANAX [Concomitant]
     Active Substance: ALPRAZOLAM
  9. METOPROLOL [Concomitant]
     Active Substance: METOPROLOL
  10. LOSARTAN [Concomitant]
     Active Substance: LOSARTAN

REACTIONS (6)
  - Peripheral swelling [Not Recovered/Not Resolved]
  - Blood creatine increased [Not Recovered/Not Resolved]
  - Muscle spasms [Not Recovered/Not Resolved]
  - Bronchitis [Recovered/Resolved]
  - Fungal infection [Recovered/Resolved]
  - Product dose omission issue [Unknown]

NARRATIVE: CASE EVENT DATE: 20240901
